FAERS Safety Report 8976513 (Version 4)
Quarter: 2013Q1

REPORT INFORMATION
  Report Type: Spontaneous
  Country: JP (occurrence: JP)
  Receive Date: 20121220
  Receipt Date: 20130130
  Transmission Date: 20140127
  Serious: Yes (Hospitalization, Congenital Anomaly)
  Sender: FDA-Public Use
  Company Number: JP-JNJFOC-20121204524

PATIENT
  Age: 8 Month
  Sex: Male
  Weight: 2.89 kg

DRUGS (14)
  1. RISPERDAL [Suspect]
     Indication: EXPOSURE DURING BREAST FEEDING
     Route: 064
  2. RISPERDAL [Suspect]
     Indication: EXPOSURE DURING BREAST FEEDING
     Route: 064
  3. RISPERDAL [Suspect]
     Indication: FOETAL EXPOSURE DURING PREGNANCY
     Route: 064
  4. RISPERDAL [Suspect]
     Indication: FOETAL EXPOSURE DURING PREGNANCY
     Route: 064
  5. ZOLPIDEM TARTRATE [Suspect]
     Indication: EXPOSURE DURING BREAST FEEDING
     Route: 064
  6. ZOLPIDEM TARTRATE [Suspect]
     Indication: FOETAL EXPOSURE DURING PREGNANCY
     Route: 064
  7. FLUNITRAZEPAM [Suspect]
     Indication: EXPOSURE DURING BREAST FEEDING
     Route: 064
  8. FLUNITRAZEPAM [Suspect]
     Indication: EXPOSURE DURING BREAST FEEDING
     Route: 064
  9. FLUNITRAZEPAM [Suspect]
     Indication: FOETAL EXPOSURE DURING PREGNANCY
     Route: 064
  10. FLUNITRAZEPAM [Suspect]
     Indication: FOETAL EXPOSURE DURING PREGNANCY
     Route: 064
  11. CHLORPROMAZINE HYDROCHLORIDE [Suspect]
     Indication: FOETAL EXPOSURE DURING PREGNANCY
     Route: 064
  12. PROMETHAZINE HYDROCHLORIDE [Suspect]
     Indication: FOETAL EXPOSURE DURING PREGNANCY
     Route: 064
  13. PHENOBARBITAL [Suspect]
     Indication: FOETAL EXPOSURE DURING PREGNANCY
     Route: 064
  14. QUETIAPINE FUMARATE [Suspect]
     Indication: EXPOSURE DURING BREAST FEEDING
     Route: 063

REACTIONS (5)
  - Altered state of consciousness [Recovered/Resolved]
  - Toxicity to various agents [Recovered/Resolved]
  - Drug withdrawal syndrome neonatal [Recovered/Resolved]
  - Ataxia [Recovered/Resolved]
  - Exposure during breast feeding [Unknown]
